FAERS Safety Report 6305970-2 (Version None)
Quarter: 2009Q3

REPORT INFORMATION
  Report Type: 
  Country: None (occurrence: None)
  Receive Date: 20090810
  Receipt Date: 20090810
  Transmission Date: 20100115
  Serious: No
  Sender: FDA-Public Use
  Company Number: None

PATIENT
  Age: 68 Year
  Sex: Male
  Weight: 97.977 kg

DRUGS (1)
  1. ZICAM COLD REMEDY RAPIDMELTS N.A. ZICAM LLC, SCOTSDALE, AZ [Suspect]
     Indication: NASOPHARYNGITIS
     Dosage: 1 TABLET EVERY 3 HRS. PO
     Route: 048
     Dates: start: 20090802, end: 20090804

REACTIONS (2)
  - AGEUSIA [None]
  - ANOSMIA [None]
